FAERS Safety Report 7985985-9 (Version None)
Quarter: 2011Q4

REPORT INFORMATION
  Report Type: 
  Country: None (occurrence: None)
  Receive Date: 20111216
  Receipt Date: 20111214
  Transmission Date: 20120403
  Serious: Yes (Hospitalization, Disabling, Other)
  Sender: FDA-Public Use
  Company Number: US-MERCK-1106USA01821

PATIENT
  Age: 50 Year
  Sex: Female

DRUGS (8)
  1. VITAMINS (UNSPECIFIED) [Concomitant]
     Route: 065
     Dates: start: 19990101
  2. CALCIUM CITRATE [Concomitant]
     Route: 065
     Dates: start: 19990101
  3. OXYCODONE [Concomitant]
     Route: 065
  4. FOSAMAX [Suspect]
     Indication: OSTEOPOROSIS
     Route: 048
     Dates: start: 20011001, end: 20080401
  5. FOSAMAX [Suspect]
     Indication: OSTEOPENIA
     Route: 048
     Dates: start: 20011001, end: 20080401
  6. OMEGA-3 MARINE TRIGLYCERIDES [Concomitant]
     Route: 065
     Dates: start: 19990101
  7. ASPIRIN [Concomitant]
     Route: 065
  8. VITAMIN D (UNSPECIFIED) [Concomitant]
     Route: 065
     Dates: start: 19990101

REACTIONS (6)
  - RASH [None]
  - BLOOD CHOLESTEROL INCREASED [None]
  - FEMUR FRACTURE [None]
  - OSTEOPETROSIS [None]
  - ANXIETY [None]
  - MUSCULOSKELETAL PAIN [None]
